FAERS Safety Report 23860394 (Version 4)
Quarter: 2024Q3

REPORT INFORMATION
  Report Type: Report from Study
  Country: CA (occurrence: CA)
  Receive Date: 20240515
  Receipt Date: 20240802
  Transmission Date: 20241016
  Serious: Yes (Hospitalization, Other)
  Sender: ABBVIE
  Company Number: CA-ABBVIE-5752977

PATIENT
  Age: 53 Year
  Sex: Female
  Weight: 129 kg

DRUGS (18)
  1. UPADACITINIB [Suspect]
     Active Substance: UPADACITINIB
     Indication: Colitis ulcerative
     Route: 048
     Dates: start: 20240428, end: 20240429
  2. UPADACITINIB [Suspect]
     Active Substance: UPADACITINIB
     Indication: Colitis ulcerative
     Route: 048
     Dates: start: 20240618
  3. DORAL [Concomitant]
     Active Substance: QUAZEPAM
     Indication: Abdominal pain
     Dosage: TIME INTERVAL: AS NECESSARY: DOSE UNIT: 1 ML/DOSE
     Route: 048
     Dates: start: 20240411
  4. LANSOPRAZOLE [Concomitant]
     Active Substance: LANSOPRAZOLE
     Indication: Gastrooesophageal reflux disease
     Route: 048
     Dates: start: 20240408
  5. TELMISARTAN [Concomitant]
     Active Substance: TELMISARTAN
     Indication: Blood pressure increased
     Route: 048
     Dates: start: 20231208
  6. APIXABAN [Concomitant]
     Active Substance: APIXABAN
     Indication: Thrombosis prophylaxis
     Route: 048
     Dates: start: 20240216
  7. BENZOYL PEROXIDE\CLINDAMYCIN [Concomitant]
     Active Substance: BENZOYL PEROXIDE\CLINDAMYCIN
     Indication: Acne
     Dosage: TIME INTERVAL: AS NECESSARY: DOSE UNIT: 1 APPLICATION
     Route: 061
     Dates: start: 20240326
  8. ZANTAC [Concomitant]
     Active Substance: RANITIDINE HYDROCHLORIDE
     Indication: Gastrooesophageal reflux disease
     Route: 048
     Dates: start: 20240408
  9. LEVOTHYROXINE [Concomitant]
     Active Substance: LEVOTHYROXINE\LEVOTHYROXINE SODIUM
     Indication: Hypothyroidism
     Route: 048
     Dates: start: 20240123
  10. TYLENOL [Concomitant]
     Active Substance: ACETAMINOPHEN
     Indication: Arthralgia
     Dosage: TIME INTERVAL: AS NECESSARY
     Route: 048
     Dates: start: 202402
  11. COLYTE [Concomitant]
     Active Substance: POLYETHYLENE GLYCOL 3350\POTASSIUM CHLORIDE\SODIUM BICARBONATE\SODIUM CHLORIDE\SODIUM SULFATE
     Indication: Endoscopy
     Dosage: FREQ: ONCE?DOSE UNIT:1 APPLICATION
     Route: 048
     Dates: start: 20240424, end: 20240424
  12. PROPOFOL [Concomitant]
     Active Substance: PROPOFOL
     Indication: Sedative therapy
     Dosage: DOSE UNIT: UNK MG/KG?FREQ: ONCE
     Route: 042
     Dates: start: 20240425, end: 20240425
  13. ACETAMINOPHEN [Concomitant]
     Active Substance: ACETAMINOPHEN
     Indication: Abdominal pain
     Route: 050
     Dates: start: 20240429
  14. ONDANSETRON [Concomitant]
     Active Substance: ONDANSETRON
     Indication: Nausea
     Route: 048
     Dates: start: 20240429
  15. kleanlyte [Concomitant]
     Indication: Colonoscopy
     Dosage: DOSE-1 PACKAGE?FREQUENCY-ONCE
     Route: 048
     Dates: start: 20240424, end: 20240424
  16. TINZAPARIN [Concomitant]
     Active Substance: TINZAPARIN
     Indication: Thrombosis prophylaxis
     Dosage: DOSE: 8000 PRESSOR UNITS
     Route: 058
     Dates: start: 20240430
  17. AMLODIPINE [Concomitant]
     Active Substance: AMLODIPINE BESYLATE
     Indication: Hypertension
     Route: 048
     Dates: start: 20240508
  18. ALTEPLASE [Concomitant]
     Active Substance: ALTEPLASE
     Indication: Thrombosis prophylaxis
     Route: 042
     Dates: start: 20240430

REACTIONS (2)
  - Intestinal obstruction [Recovered/Resolved]
  - Colon cancer stage III [Not Recovered/Not Resolved]

NARRATIVE: CASE EVENT DATE: 20240429
